FAERS Safety Report 17371851 (Version 1)
Quarter: 2020Q1

REPORT INFORMATION
  Report Type: Spontaneous
  Country: UG (occurrence: UG)
  Receive Date: 20200205
  Receipt Date: 20200205
  Transmission Date: 20200409
  Serious: Yes (Other)
  Sender: FDA-Public Use
  Company Number: UG-HETERO-HET2020UG00097

PATIENT
  Age: 10 Year
  Sex: Female

DRUGS (3)
  1. LOPINAVIR + RITONAVIR [Suspect]
     Active Substance: LOPINAVIR\RITONAVIR
     Indication: HIV INFECTION
     Route: 065
  2. ZIDOVUDINE. [Suspect]
     Active Substance: ZIDOVUDINE
     Indication: HIV INFECTION
     Dosage: UNK
     Route: 065
  3. LAMIVUDINE. [Suspect]
     Active Substance: LAMIVUDINE
     Indication: HIV INFECTION
     Route: 065

REACTIONS (3)
  - Immune reconstitution inflammatory syndrome [Recovered/Resolved]
  - Meningitis cryptococcal [Recovered/Resolved]
  - IVth nerve paralysis [Recovered/Resolved]
